FAERS Safety Report 16159979 (Version 1)
Quarter: 2019Q2

REPORT INFORMATION
  Report Type: Spontaneous
  Country: US (occurrence: US)
  Receive Date: 20190404
  Receipt Date: 20190404
  Transmission Date: 20190711
  Serious: No
  Sender: FDA-Public Use
  Company Number: US-TEVA-2019-US-1033405

PATIENT
  Age: 70 Year

DRUGS (1)
  1. LIDOCAINE. [Suspect]
     Active Substance: LIDOCAINE
     Route: 065

REACTIONS (2)
  - Product adhesion issue [Unknown]
  - Urticaria [Unknown]

NARRATIVE: CASE EVENT DATE: 20190322
